FAERS Safety Report 6418528-1 (Version None)
Quarter: 2009Q4

REPORT INFORMATION
  Report Type: 
  Country: None (occurrence: None)
  Receive Date: 20091021
  Receipt Date: 20090724
  Transmission Date: 20100525
  Serious: No
  Sender: FDA-Public Use
  Company Number: ALL1-2009-01970

PATIENT
  Age: 52 Year
  Sex: Female
  Weight: 83.9 kg

DRUGS (9)
  1. VYVANSE [Suspect]
     Indication: ATTENTION DEFICIT/HYPERACTIVITY DISORDER
     Dosage: 70 MG, 1X/DAY:QD, ORAL :70 MG, 1X/DAY:QD, ORAL 1X/DAY:QD, ORAL
     Route: 048
     Dates: start: 20080801, end: 20080801
  2. VYVANSE [Suspect]
     Indication: ATTENTION DEFICIT/HYPERACTIVITY DISORDER
     Dosage: 70 MG, 1X/DAY:QD, ORAL :70 MG, 1X/DAY:QD, ORAL 1X/DAY:QD, ORAL
     Route: 048
     Dates: start: 20090101, end: 20090101
  3. METHADONE (METHADONE) [Concomitant]
  4. SUBOXONE [Concomitant]
  5. LEXAPRO [Concomitant]
  6. SEROQUEL [Concomitant]
  7. LYRICA [Concomitant]
  8. ZOLPIDEM TARTRATE [Concomitant]
  9. XANAX [Concomitant]

REACTIONS (2)
  - APATHY [None]
  - DRUG INEFFECTIVE [None]
